FAERS Safety Report 5734573-3 (Version None)
Quarter: 2008Q2

REPORT INFORMATION
  Report Type: 
  Country: None (occurrence: None)
  Receive Date: 20080512
  Receipt Date: 20080430
  Transmission Date: 20081010
  Serious: Yes (Other)
  Sender: FDA-Public Use
  Company Number: GB-AMGEN-US277772

PATIENT
  Sex: Female

DRUGS (3)
  1. ENBREL [Suspect]
     Indication: DRUG USE FOR UNKNOWN INDICATION
     Route: 058
  2. BENDROFLUMETHIAZIDE [Concomitant]
     Dosage: UNKNOWN
     Route: 065
  3. METHOTREXATE [Concomitant]
     Dosage: UNKNOWN
     Route: 065

REACTIONS (5)
  - CHEST PAIN [None]
  - HYPERTENSION [None]
  - INJECTION SITE PAIN [None]
  - LOWER RESPIRATORY TRACT INFECTION [None]
  - PHARYNGOLARYNGEAL PAIN [None]
